FAERS Safety Report 4658177-9 (Version None)
Quarter: 2005Q2

REPORT INFORMATION
  Report Type: 
  Country: None (occurrence: None)
  Receive Date: 20050504
  Receipt Date: 20040913
  Transmission Date: 20051028
  Serious: Yes (Other)
  Sender: FDA-Public Use
  Company Number: PHEH2004US09202

PATIENT
  Age: 53 Year
  Sex: Female

DRUGS (4)
  1. DIOVAN HCT [Suspect]
     Indication: HYPERTENSION
     Dosage: ONE TABLET DAILY, ORAL
     Route: 048
     Dates: start: 20040809, end: 20040816
  2. FIORINAL W/CODEINE [Suspect]
     Indication: MIGRAINE
  3. CLONIDINE [Concomitant]
  4. PHENERGAN (PROMETHAZINE HYDROCHLORIDE) [Concomitant]

REACTIONS (7)
  - BLOOD ALKALINE PHOSPHATASE INCREASED [None]
  - BLOOD CHLORIDE DECREASED [None]
  - BLOOD GLUCOSE INCREASED [None]
  - FULL BLOOD COUNT ABNORMAL [None]
  - HEADACHE [None]
  - HYPERNATRAEMIA [None]
  - HYPOKALAEMIA [None]
